FAERS Safety Report 6793267-6 (Version None)
Quarter: 2010Q2

REPORT INFORMATION
  Report Type: 
  Country: None (occurrence: None)
  Receive Date: 20100624
  Receipt Date: 20091109
  Transmission Date: 20101027
  Serious: Yes (Death)
  Sender: FDA-Public Use
  Company Number: US-MYLANLABS-2009S1017686

PATIENT
  Age: 74 Year
  Sex: Female
  Weight: 85.28 kg

DRUGS (8)
  1. CLOZAPINE [Suspect]
     Indication: SCHIZOPHRENIA
     Route: 048
     Dates: start: 20090805, end: 20090910
  2. CLOZAPINE [Suspect]
     Route: 048
     Dates: start: 20090805, end: 20090910
  3. LUVOX [Concomitant]
     Route: 048
  4. ZOLOFT [Concomitant]
     Route: 048
  5. COGENTIN [Concomitant]
     Route: 048
  6. ARICEPT [Concomitant]
     Route: 048
  7. LAMICTAL [Concomitant]
     Route: 048
  8. NAMENDA [Concomitant]
     Route: 048

REACTIONS (4)
  - IMPAIRED SELF-CARE [None]
  - NEOPLASM MALIGNANT [None]
  - PNEUMONIA [None]
  - WEIGHT DECREASED [None]
